FAERS Safety Report 21736903 (Version 1)
Quarter: 2022Q4

REPORT INFORMATION
  Report Type: Spontaneous
  Country: ES (occurrence: ES)
  Receive Date: 20221216
  Receipt Date: 20221216
  Transmission Date: 20230112
  Serious: Yes (Hospitalization)
  Sender: FDA-Public Use
  Company Number: None

PATIENT
  Age: 90 Year
  Sex: Female

DRUGS (6)
  1. TRAMADOL [Suspect]
     Active Substance: TRAMADOL
     Indication: Pain in extremity
     Dosage: 150 MILLIGRAM DAILY; (2389A), 50.0 MG WITH 8 HOURS, DURATION 7 DAYS
     Dates: start: 20220601, end: 20220608
  2. LORAZEPAM [Concomitant]
     Active Substance: LORAZEPAM
     Indication: Insomnia
     Dosage: 1 MILLIGRAM DAILY; 50 TABLETS
     Dates: start: 20110720
  3. SIMVASTATIN [Concomitant]
     Active Substance: SIMVASTATIN
     Indication: Product used for unknown indication
     Dosage: 10 MILLIGRAM DAILY; 28 TABLETS
     Dates: start: 20110720
  4. HYDROCHLOROTHIAZIDE\IRBESARTAN [Concomitant]
     Active Substance: HYDROCHLOROTHIAZIDE\IRBESARTAN
     Indication: Product used for unknown indication
     Dosage: 300.0 MG DE, STRENGTH: 300 MG/12.5 MG , 28 TABLETS
     Dates: start: 20110720
  5. CALCIUM CARBONATE\CHOLECALCIFEROL [Concomitant]
     Active Substance: CALCIUM CARBONATE\CHOLECALCIFEROL
     Indication: Product used for unknown indication
     Dosage: 1 DOSAGE FORMS DAILY; STRENGTH: 500 MG/400 IU, 60 TABLETS
     Dates: start: 20110720
  6. PREMAX [Concomitant]
     Indication: Sciatica
     Dosage: STRENGTH: 25.0 MG, 56 TABLETS
     Dates: start: 20220802

REACTIONS (1)
  - Disorientation [Recovered/Resolved]

NARRATIVE: CASE EVENT DATE: 20220611
